FAERS Safety Report 9981739 (Version 1)
Quarter: 2014Q1

REPORT INFORMATION
  Report Type: Spontaneous
  Country: US (occurrence: None)
  Receive Date: 20140306
  Receipt Date: 20140306
  Transmission Date: 20141002
  Serious: Yes (Life-Threatening, Hospitalization)
  Sender: FDA-Public Use
  Company Number: None

PATIENT
  Age: 79 Year
  Sex: Female
  Weight: 66.3 kg

DRUGS (9)
  1. IBUTILIDE [Suspect]
     Indication: ATRIAL FLUTTER
     Route: 042
     Dates: start: 20140303, end: 20140303
  2. IBUTILIDE [Suspect]
     Indication: CARDIOVERSION
     Route: 042
     Dates: start: 20140303, end: 20140303
  3. ADENOSINE [Concomitant]
  4. MAGNESIUM SULFATE [Concomitant]
  5. MORPHINE SULFATE [Concomitant]
  6. SOLUMEDROL [Concomitant]
  7. NOREPINEPHRINE [Concomitant]
  8. VANCOMYCIN [Concomitant]
  9. FAMOTIDINE [Concomitant]

REACTIONS (3)
  - Hypotension [None]
  - Torsade de pointes [None]
  - Hypersensitivity [None]
